FAERS Safety Report 20216542 (Version 1)
Quarter: 2021Q4

REPORT INFORMATION
  Report Type: Spontaneous
  Country: IN (occurrence: IN)
  Receive Date: 20211222
  Receipt Date: 20211222
  Transmission Date: 20220303
  Serious: Yes (Other)
  Sender: FDA-Public Use
  Company Number: IN-MYLANLABS-2021M1094562

PATIENT
  Age: 6 Decade
  Sex: Male

DRUGS (4)
  1. GEMCITABINE [Suspect]
     Active Substance: GEMCITABINE
     Indication: Adenocarcinoma gastric
     Dosage: 800 MILLIGRAM, CYCLE, ON DAY 1 AND DAY 8 OF 21 DAY CYCLE; RECEIVED 5 CYCLES
     Route: 042
     Dates: start: 201810, end: 201902
  2. PEMETREXED [Suspect]
     Active Substance: PEMETREXED
     Indication: Adenocarcinoma gastric
     Dosage: 400 MILLIGRAM, CYCLE, ON DAY 1 AND DAY 8 OF 21 DAY CYCLE; RECEIVED 5 CYCLES
     Route: 042
     Dates: start: 201810, end: 201902
  3. PAZOPANIB [Suspect]
     Active Substance: PAZOPANIB
     Indication: Adenocarcinoma gastric
     Dosage: 400 MILLIGRAM, QD, RECEIVED 5 CYCLES
     Route: 048
     Dates: start: 201810, end: 201902
  4. PAZOPANIB [Suspect]
     Active Substance: PAZOPANIB
     Dosage: UNK, MAINTENANCE TREATMENT
     Route: 048

REACTIONS (4)
  - Thrombocytopenia [Recovered/Resolved]
  - Pneumothorax [Recovered/Resolved]
  - Sepsis [Recovered/Resolved]
  - Fatigue [Recovered/Resolved]
